FAERS Safety Report 10459461 (Version 4)
Quarter: 2015Q2

REPORT INFORMATION
  Report Type: Spontaneous
  Country: JP (occurrence: JP)
  Receive Date: 20140917
  Receipt Date: 20150417
  Transmission Date: 20150821
  Serious: Yes (Death)
  Sender: FDA-Public Use
  Company Number: JP-MALLINCKRODT-T201403460

PATIENT
  Age: 51 Year
  Sex: Male
  Weight: 52 kg

DRUGS (18)
  1. METHADONE [Suspect]
     Active Substance: METHADONE HYDROCHLORIDE
     Indication: CANCER PAIN
     Dosage: 10 MG, (30 MG DAILY DOSE)
     Route: 048
     Dates: start: 20140204, end: 20140212
  2. FLUMARIN                           /00963302/ [Concomitant]
     Active Substance: FLOMOXEF SODIUM
     Indication: LUNG NEOPLASM MALIGNANT
     Dosage: 2 G, UNK
     Route: 051
     Dates: start: 20140207, end: 20140208
  3. DECADRON [Concomitant]
     Active Substance: DEXAMETHASONE
     Dosage: 4 MG
     Route: 051
     Dates: start: 20140207, end: 20140207
  4. FOY [Concomitant]
     Active Substance: GABEXATE MESYLATE
     Dosage: 400 MG, UNK
     Route: 051
     Dates: start: 20140214, end: 20140214
  5. MORPHINE HYDROCHLORIDE [Concomitant]
     Active Substance: MORPHINE HYDROCHLORIDE
     Dosage: 40-200 MG, PRN
     Route: 048
     Dates: start: 20140203
  6. LOXONIN [Concomitant]
     Active Substance: LOXOPROFEN SODIUM
     Dosage: 180 MG, UNK
     Route: 048
  7. ISOBIDE                            /00586301/ [Concomitant]
     Indication: LUNG NEOPLASM MALIGNANT
     Dosage: 90 ML, UNK
     Route: 048
     Dates: end: 20140206
  8. LYRICA [Concomitant]
     Active Substance: PREGABALIN
     Dosage: 225 MG, UNK
     Route: 048
  9. MAGLAX [Concomitant]
     Active Substance: MAGNESIUM OXIDE
     Dosage: 750 MG, UNK
     Route: 048
  10. DECADRON [Concomitant]
     Active Substance: DEXAMETHASONE
     Indication: LUNG NEOPLASM MALIGNANT
     Dosage: 2 MG
     Route: 048
     Dates: end: 20140206
  11. FOY [Concomitant]
     Active Substance: GABEXATE MESYLATE
     Indication: LUNG NEOPLASM MALIGNANT
     Dosage: 400 MG, UNK
     Route: 051
     Dates: start: 20140207, end: 20140207
  12. GLYCEREB [Concomitant]
     Indication: LUNG NEOPLASM MALIGNANT
     Dosage: 200 ML, UNK
     Route: 051
     Dates: start: 20140207, end: 20140207
  13. METHADONE [Suspect]
     Active Substance: METHADONE HYDROCHLORIDE
     Dosage: 10 MG, (30 MG DAILY DOSE)
     Route: 048
     Dates: start: 20140217, end: 20140226
  14. MUCOSTA [Concomitant]
     Active Substance: REBAMIPIDE
     Dosage: 300 MG, UNK
     Route: 048
  15. TAKEPRON [Concomitant]
     Active Substance: LANSOPRAZOLE
     Dosage: 15 MG, UNK
     Route: 048
  16. FLUMARIN                           /00963302/ [Concomitant]
     Active Substance: FLOMOXEF SODIUM
     Dosage: 2 G, UNK
     Route: 051
     Dates: start: 20140213, end: 20140217
  17. METHADONE [Suspect]
     Active Substance: METHADONE HYDROCHLORIDE
     Dosage: 35 MG DAILY DOSE
     Route: 048
     Dates: start: 20140213, end: 20140216
  18. FOY [Concomitant]
     Active Substance: GABEXATE MESYLATE
     Dosage: 300 MG, UNK
     Route: 051
     Dates: start: 20140208, end: 20140208

REACTIONS (3)
  - Lung adenocarcinoma [Fatal]
  - Somnolence [Not Recovered/Not Resolved]
  - Hypomagnesaemia [Not Recovered/Not Resolved]

NARRATIVE: CASE EVENT DATE: 20140205
